FAERS Safety Report 20679437 (Version 1)
Quarter: 2022Q2

REPORT INFORMATION
  Report Type: Spontaneous
  Country: US (occurrence: None)
  Receive Date: 20220405
  Receipt Date: 20220405
  Transmission Date: 20220720
  Serious: Yes (unspecified)
  Sender: FDA-Public Use
  Company Number: None

PATIENT
  Age: 41 Year
  Sex: Female
  Weight: 81 kg

DRUGS (1)
  1. GLATIRAMER ACETATE [Suspect]
     Active Substance: GLATIRAMER ACETATE
     Indication: Multiple sclerosis
     Dosage: OTHER QUANTITY : 1 INJECTION(S);?FREQUENCY : DAILY;?
     Route: 058
     Dates: start: 20110730, end: 20220129

REACTIONS (7)
  - Injection site reaction [None]
  - Venous injury [None]
  - Injection site bruising [None]
  - Injection site pain [None]
  - Injection site ulcer [None]
  - Injection site infection [None]
  - Injection site necrosis [None]

NARRATIVE: CASE EVENT DATE: 20220129
